FAERS Safety Report 4783692-7 (Version None)
Quarter: 2005Q3

REPORT INFORMATION
  Report Type: 
  Country: None (occurrence: None)
  Receive Date: 20050928
  Receipt Date: 20050915
  Transmission Date: 20060218
  Serious: Yes (Hospitalization, Other)
  Sender: FDA-Public Use
  Company Number: 2005-BP-16297RO

PATIENT
  Age: 28 Year
  Sex: Female

DRUGS (5)
  1. PREDNISONE [Suspect]
     Indication: SYSTEMIC LUPUS ERYTHEMATOSUS
     Dosage: 12.5 MG/DAY, PO
     Route: 048
  2. OXCARBAZEPINE (OXCARBAZEPINE) [Suspect]
     Indication: COMPLEX PARTIAL SEIZURES
     Dosage: 600 MG (300 MG, 1 IN 12 HR), PO
     Route: 048
  3. TOPIRAMATE [Suspect]
     Indication: COMPLEX PARTIAL SEIZURES
     Dosage: 50 TO 100 MG EVERY 12 HOURS
  4. PHENOBARBITAL TAB [Suspect]
     Indication: COMPLEX PARTIAL SEIZURES
     Dosage: 200 MG (100 MG, 1 IN 12 HR)
  5. LEVETIRACETAM [Suspect]
     Indication: COMPLEX PARTIAL SEIZURES
     Dosage: 1000  TO 1500 MG/DAY(1 IN 12 HR)

REACTIONS (9)
  - ANGLE CLOSURE GLAUCOMA [None]
  - COMPLEX PARTIAL SEIZURES [None]
  - CONFUSIONAL STATE [None]
  - IRRITABILITY [None]
  - MYOPIA [None]
  - OCULAR HYPERAEMIA [None]
  - PLATELET COUNT DECREASED [None]
  - SOMNOLENCE [None]
  - WHITE BLOOD CELL COUNT DECREASED [None]
